FAERS Safety Report 9494734 (Version 1)
Quarter: 2013Q3

REPORT INFORMATION
  Report Type: Spontaneous
  Country: US (occurrence: US)
  Receive Date: 20130903
  Receipt Date: 20130903
  Transmission Date: 20140515
  Serious: No
  Sender: FDA-Public Use
  Company Number: US-PFIZER INC-2013251554

PATIENT
  Age: 55 Year
  Sex: Female
  Weight: 84.35 kg

DRUGS (5)
  1. NEURONTIN [Suspect]
     Indication: PARAESTHESIA
     Dosage: 300 MG, 3X/DAY
     Route: 048
     Dates: start: 20130706
  2. EFFEXOR [Concomitant]
     Dosage: UNK
  3. FLEXERIL [Concomitant]
     Indication: INSOMNIA
     Dosage: UNK
  4. ESTROGENS [Concomitant]
     Dosage: UNK
  5. PROGESTERONE [Concomitant]
     Dosage: UNK

REACTIONS (8)
  - Off label use [Unknown]
  - Drug ineffective for unapproved indication [Unknown]
  - Hypoaesthesia [Unknown]
  - Somnolence [Unknown]
  - Agitation [Unknown]
  - Panic attack [Unknown]
  - Alopecia [Unknown]
  - Feeling abnormal [Unknown]
